FAERS Safety Report 11913091 (Version 1)
Quarter: 2016Q1

REPORT INFORMATION
  Report Type: Spontaneous
  Country: US (occurrence: US)
  Receive Date: 20160113
  Receipt Date: 20160113
  Transmission Date: 20160526
  Serious: Yes (Hospitalization, Other)
  Sender: FDA-Public Use
  Company Number: US-AMGEN-USASP2016000136

PATIENT
  Age: 71 Year
  Sex: Male

DRUGS (21)
  1. XGEVA [Suspect]
     Active Substance: DENOSUMAB
     Indication: PRODUCT USED FOR UNKNOWN INDICATION
     Dosage: UNK
     Route: 065
  2. VITAMIN C [Concomitant]
     Active Substance: ASCORBIC ACID
  3. NIZORAL [Concomitant]
     Active Substance: KETOCONAZOLE
  4. FORMOTEROL FUMARATE [Concomitant]
     Active Substance: FORMOTEROL FUMARATE
  5. SURFAK [Concomitant]
  6. VITAMIN B12 [Concomitant]
     Active Substance: CYANOCOBALAMIN
  7. MILK THISTLE                       /01131701/ [Concomitant]
  8. FLUNISOLIDE. [Concomitant]
     Active Substance: FLUNISOLIDE
  9. ALBUTEROL                          /00139501/ [Concomitant]
     Active Substance: ALBUTEROL
  10. DOCUSATE [Concomitant]
     Active Substance: DOCUSATE
  11. TYLENOL [Concomitant]
     Active Substance: ACETAMINOPHEN
  12. COQ 10 [Concomitant]
     Active Substance: UBIDECARENONE
  13. O2                                 /00150301/ [Concomitant]
     Active Substance: OXYGEN
  14. SPECTAZOLE [Concomitant]
     Active Substance: ECONAZOLE NITRATE
  15. BUDESONIDE. [Concomitant]
     Active Substance: BUDESONIDE
  16. XTANDI [Suspect]
     Active Substance: ENZALUTAMIDE
     Indication: PROSTATE CANCER
     Dosage: 160 MG, QD
     Route: 048
     Dates: start: 20141227
  17. HYDROCHLOROTHIAZIDE W/TRIAMTERENE [Concomitant]
     Active Substance: HYDROCHLOROTHIAZIDE\TRIAMTERENE
  18. ASPIRIN                            /00002701/ [Concomitant]
     Active Substance: ASPIRIN
  19. DERMACAIN [Concomitant]
  20. COLECALCIFEROL [Concomitant]
     Active Substance: CHOLECALCIFEROL
  21. LASIX [Concomitant]
     Active Substance: FUROSEMIDE

REACTIONS (9)
  - Anaemia [Unknown]
  - Asthenia [Unknown]
  - Internal haemorrhage [Unknown]
  - Vascular rupture [Unknown]
  - Metastases to bone [Unknown]
  - Dyspnoea [Not Recovered/Not Resolved]
  - Blood pressure abnormal [Unknown]
  - Hospitalisation [Unknown]
  - Oedema [Unknown]

NARRATIVE: CASE EVENT DATE: 20150423
